FAERS Safety Report 10539614 (Version 2)
Quarter: 2014Q4

REPORT INFORMATION
  Report Type: Spontaneous
  Country: US (occurrence: US)
  Receive Date: 20141023
  Receipt Date: 20141023
  Transmission Date: 20150529
  Serious: No
  Sender: FDA-Public Use
  Company Number: US-ALLERGAN-1317930US

PATIENT
  Age: 83 Year
  Sex: Female

DRUGS (6)
  1. TYLENOL [Concomitant]
     Active Substance: ACETAMINOPHEN
     Indication: ARTHRITIS
     Dosage: UNK, PRN
     Route: 048
  2. TEMAZEPAM. [Concomitant]
     Active Substance: TEMAZEPAM
     Indication: INSOMNIA
     Dosage: 30 MG, QHS
     Route: 048
  3. EVISTA [Concomitant]
     Active Substance: RALOXIFENE HYDROCHLORIDE
     Indication: OSTEOPOROSIS
     Dosage: 1 PILL, Q WEEK
     Route: 048
  4. SYSTANE OINTMENT [Concomitant]
     Indication: PRODUCT USED FOR UNKNOWN INDICATION
     Dosage: UNK, QHS
     Route: 047
  5. ALEVE [Concomitant]
     Active Substance: NAPROXEN SODIUM
     Indication: ARTHRITIS
     Dosage: UNK, PRN
     Route: 048
  6. COMBIGAN[R] [Suspect]
     Active Substance: BRIMONIDINE TARTRATE\TIMOLOL MALEATE
     Indication: GLAUCOMA
     Dosage: 2 GTT, BID
     Route: 047

REACTIONS (5)
  - Eye irritation [Recovered/Resolved]
  - Fatigue [Not Recovered/Not Resolved]
  - Ocular hyperaemia [Recovered/Resolved]
  - Somnolence [Not Recovered/Not Resolved]
  - Balance disorder [Not Recovered/Not Resolved]

NARRATIVE: CASE EVENT DATE: 2012
